FAERS Safety Report 7558066-6 (Version None)
Quarter: 2011Q2

REPORT INFORMATION
  Report Type: 
  Country: None (occurrence: None)
  Receive Date: 20110525
  Receipt Date: 20110207
  Transmission Date: 20111010
  Serious: No
  Sender: FDA-Public Use
  Company Number: 323301

PATIENT
  Age: 39 Year
  Sex: Female

DRUGS (3)
  1. VICTOZA [Suspect]
     Indication: TYPE 2 DIABETES MELLITUS
     Dosage: 1.2 MG, QD, SUBCUTANEOUS
     Route: 058
     Dates: start: 20100801
  2. VICTOZA [Suspect]
     Dosage: 1.8 , QD, SUBCUTANEOUS
     Route: 058
     Dates: start: 20101201
  3. METFORMIN HCL [Concomitant]

REACTIONS (3)
  - DIABETIC GASTROPARESIS [None]
  - DRUG INEFFECTIVE [None]
  - BLOOD GLUCOSE INCREASED [None]
